FAERS Safety Report 9088548 (Version 1)
Quarter: 2013Q1

REPORT INFORMATION
  Report Type: Report from Study
  Country: US (occurrence: US)
  Receive Date: 20130131
  Receipt Date: 20130131
  Transmission Date: 20140127
  Serious: No
  Sender: FDA-Public Use
  Company Number: US-ABBOTT-12P-163-1010123-00

PATIENT
  Age: 35 Year
  Sex: Female

DRUGS (1)
  1. HUMIRA [Suspect]
     Indication: CROHN^S DISEASE
     Route: 058
     Dates: start: 200909

REACTIONS (8)
  - Injection site pain [Recovering/Resolving]
  - Injection site pain [Recovering/Resolving]
  - Gastrooesophageal reflux disease [Unknown]
  - Stress [Unknown]
  - Colonoscopy abnormal [Unknown]
  - Device malfunction [Unknown]
  - Injection site pain [Unknown]
  - Incorrect dose administered [Unknown]
